FAERS Safety Report 23966776 (Version 1)
Quarter: 2024Q2

REPORT INFORMATION
  Report Type: Spontaneous
  Country: CN (occurrence: CN)
  Receive Date: 20240612
  Receipt Date: 20240612
  Transmission Date: 20240716
  Serious: Yes (Hospitalization)
  Sender: FDA-Public Use
  Company Number: CN-PFIZER INC-PV202400075381

PATIENT
  Age: 51 Year
  Sex: Male
  Weight: 54 kg

DRUGS (2)
  1. TYGACIL [Suspect]
     Active Substance: TIGECYCLINE
     Indication: Sepsis
     Dosage: 100 MG, 2X/DAY
     Route: 041
     Dates: start: 20240519, end: 20240521
  2. SODIUM CHLORIDE [Concomitant]
     Active Substance: SODIUM CHLORIDE
     Indication: Vehicle solution use
     Dosage: 100 ML, 2X/DAY
     Route: 041
     Dates: start: 20240519, end: 20240521

REACTIONS (6)
  - Coagulation time prolonged [Recovering/Resolving]
  - Pancreatic enzymes increased [Recovering/Resolving]
  - Lipase increased [Recovering/Resolving]
  - Amylase increased [Recovering/Resolving]
  - Prothrombin time prolonged [Recovering/Resolving]
  - Prothrombin level decreased [Recovering/Resolving]

NARRATIVE: CASE EVENT DATE: 20240521
